FAERS Safety Report 22137076 (Version 1)
Quarter: 2023Q1

REPORT INFORMATION
  Report Type: Spontaneous
  Country: BR (occurrence: BR)
  Receive Date: 20230324
  Receipt Date: 20230324
  Transmission Date: 20230418
  Serious: Yes (Other)
  Sender: FDA-Public Use
  Company Number: BR-ELI_LILLY_AND_COMPANY-BR202303006582

PATIENT
  Sex: Female

DRUGS (5)
  1. ABEMACICLIB [Suspect]
     Active Substance: ABEMACICLIB
     Indication: Product used for unknown indication
     Dosage: UNK UNK, UNKNOWN
     Route: 065
     Dates: start: 2021
  2. ABEMACICLIB [Suspect]
     Active Substance: ABEMACICLIB
     Dosage: UNK UNK, UNKNOWN (IN ITS MAXIMUM DOSAGE)
     Route: 065
     Dates: start: 20230130
  3. ABEMACICLIB [Suspect]
     Active Substance: ABEMACICLIB
     Dosage: 200 G, DAILY
     Route: 065
  4. ABEMACICLIB [Suspect]
     Active Substance: ABEMACICLIB
     Dosage: 400 G, DAILY
     Route: 065
     Dates: start: 20230306
  5. FEMARA [Concomitant]
     Active Substance: LETROZOLE
     Indication: Product used for unknown indication

REACTIONS (2)
  - Dysentery [Not Recovered/Not Resolved]
  - Hypophagia [Not Recovered/Not Resolved]
